FAERS Safety Report 8758249 (Version 1)
Quarter: 2012Q4

REPORT INFORMATION
  Report Type: Spontaneous
  Country: US (occurrence: None)
  Receive Date: 20120828
  Receipt Date: 20120828
  Transmission Date: 20130627
  Serious: Yes (Death)
  Sender: FDA-Public Use
  Company Number: None

PATIENT
  Age: 58 Year
  Sex: Male
  Weight: 84.1 kg

DRUGS (2)
  1. PRASUGREL [Suspect]
     Indication: CORONARY ARTERY DISEASE
     Route: 048
  2. ASPIRIN [Suspect]
     Route: 048

REACTIONS (1)
  - Haemorrhagic stroke [None]
